FAERS Safety Report 13853195 (Version 1)
Quarter: 2017Q3

REPORT INFORMATION
  Report Type: Spontaneous
  Country: IT (occurrence: IT)
  Receive Date: 20170810
  Receipt Date: 20170810
  Transmission Date: 20171127
  Serious: Yes (Hospitalization)
  Sender: FDA-Public Use
  Company Number: IT-ASTRAZENECA-2017SE80333

PATIENT
  Age: 22309 Day
  Sex: Female
  Weight: 53 kg

DRUGS (1)
  1. LYNPARZA [Suspect]
     Active Substance: OLAPARIB
     Indication: OVARIAN NEOPLASM
     Route: 048
     Dates: start: 20170301

REACTIONS (1)
  - Hypertransaminasaemia [Unknown]

NARRATIVE: CASE EVENT DATE: 20170714
